FAERS Safety Report 15458670 (Version 1)
Quarter: 2018Q3

REPORT INFORMATION
  Report Type: Spontaneous
  Country: US (occurrence: US)
  Receive Date: 20180930
  Receipt Date: 20180930
  Transmission Date: 20181020
  Serious: Yes (Hospitalization)
  Sender: FDA-Public Use
  Company Number: None

PATIENT
  Age: 22 Year
  Sex: Female
  Weight: 60.75 kg

DRUGS (2)
  1. DAILY VITAMIN [Concomitant]
     Active Substance: VITAMINS
  2. DOXYCYCLINE HYC 100 MG TABLET [Suspect]
     Active Substance: DOXYCYCLINE HYCLATE
     Indication: PERIORAL DERMATITIS
     Dosage: ?          QUANTITY:1 DF DOSAGE FORM;?
     Route: 048
     Dates: start: 20180807, end: 20180826

REACTIONS (1)
  - Oesophageal ulcer [None]

NARRATIVE: CASE EVENT DATE: 20180826
